FAERS Safety Report 18742405 (Version 1)
Quarter: 2021Q1

REPORT INFORMATION
  Report Type: Spontaneous
  Country: IT (occurrence: IT)
  Receive Date: 20210114
  Receipt Date: 20210114
  Transmission Date: 20210419
  Serious: Yes (Other)
  Sender: FDA-Public Use
  Company Number: IT-ALLERGAN-2102054US

PATIENT
  Sex: Male

DRUGS (1)
  1. SILODOSIN ? BP [Suspect]
     Active Substance: SILODOSIN
     Indication: PRODUCT USED FOR UNKNOWN INDICATION
     Dosage: UNK
     Route: 065
     Dates: start: 20200715

REACTIONS (2)
  - Speech disorder [Unknown]
  - Tongue oedema [Unknown]

NARRATIVE: CASE EVENT DATE: 20200718
